FAERS Safety Report 14018816 (Version 2)
Quarter: 2017Q4

REPORT INFORMATION
  Report Type: Spontaneous
  Country: US (occurrence: US)
  Receive Date: 20170928
  Receipt Date: 20171110
  Transmission Date: 20180321
  Serious: No
  Sender: FDA-Public Use
  Company Number: US-PFIZER INC-2017417546

PATIENT
  Age: 49 Year
  Sex: Male
  Weight: 58.97 kg

DRUGS (2)
  1. SOLU-CORTEF [Suspect]
     Active Substance: HYDROCORTISONE SODIUM SUCCINATE
     Indication: ADRENAL INSUFFICIENCY
     Dosage: 25 MG, DAILY
     Route: 030
     Dates: start: 201701
  2. SOLU-CORTEF [Suspect]
     Active Substance: HYDROCORTISONE SODIUM SUCCINATE
     Dosage: 37.5 MG, DAILY

REACTIONS (6)
  - Drug ineffective [Unknown]
  - Drug intolerance [Unknown]
  - Feeling abnormal [Unknown]
  - Feeling cold [Not Recovered/Not Resolved]
  - Blood pressure decreased [Unknown]
  - Syncope [Unknown]

NARRATIVE: CASE EVENT DATE: 201701
